FAERS Safety Report 9231912 (Version 1)
Quarter: 2013Q2

REPORT INFORMATION
  Report Type: Spontaneous
  Country: US (occurrence: US)
  Receive Date: 20130415
  Receipt Date: 20130415
  Transmission Date: 20140414
  Serious: Yes (Other)
  Sender: FDA-Public Use
  Company Number: US-COVIDIEN/TYCO HEALTHCARE/MALLINCKRODT-T201204619

PATIENT
  Age: 66 Year
  Sex: Male
  Weight: 84.9 kg

DRUGS (3)
  1. FENTANYL CITRATE [Suspect]
     Dosage: 1.2 MG
  2. METHADOSE [Suspect]
     Dosage: 20 MG
  3. OXYCODONE ALONE OR IN COMBINATION [Suspect]
     Dosage: 120 MG

REACTIONS (2)
  - Suicide attempt [Unknown]
  - Refusal of treatment by patient [None]
